FAERS Safety Report 8212055-7 (Version None)
Quarter: 2012Q1

REPORT INFORMATION
  Report Type: 
  Country: None (occurrence: None)
  Receive Date: 20120315
  Receipt Date: 20120306
  Transmission Date: 20120608
  Serious: Yes (Hospitalization, Other)
  Sender: FDA-Public Use
  Company Number: PHHY2012DE015220

PATIENT
  Sex: Female
  Weight: 70 kg

DRUGS (17)
  1. RAMIPRIL [Concomitant]
     Indication: CARDIAC FAILURE
     Dosage: 25/5 MG QD
     Route: 048
     Dates: start: 20090127
  2. FUROSEMIDE [Concomitant]
     Indication: OEDEMA
     Dosage: 62.5 MG PER DAY
     Route: 048
     Dates: start: 20090327, end: 20091001
  3. THIENOPYRIDINE [Concomitant]
  4. ANGIOTENSIN CONVERTING ENZYME BLOCKERS [Concomitant]
  5. RASILEZ [Suspect]
     Indication: HYPERTENSION
     Dosage: 150 MG, QD
     Route: 048
     Dates: start: 20081113, end: 20110920
  6. SIMVASTATIN [Concomitant]
     Dosage: 40 MG, QD
     Route: 048
     Dates: start: 20050420
  7. LEVOTHYROXINE SODIUM [Concomitant]
     Indication: THYROID DISORDER
     Dosage: 125 UG, QD
     Route: 048
     Dates: start: 20070302
  8. CLONIDINE [Concomitant]
     Dosage: 500 MG,
     Route: 048
     Dates: start: 20091214, end: 20110719
  9. RAMIPRIL [Concomitant]
     Indication: HYPERTENSION
     Dosage: 5 MG, QD
     Route: 048
     Dates: start: 20071124
  10. CLONIDINE [Concomitant]
     Indication: HYPERTENSION
     Dosage: 750 MG, QD
     Route: 048
     Dates: start: 20030522, end: 20091213
  11. NEBIVOLOL [Concomitant]
     Indication: HYPERTENSION
     Dosage: 5 MG, QD
     Route: 048
     Dates: start: 20060415
  12. AMLODIPINE [Concomitant]
     Dosage: 10 MG, QD
     Route: 048
     Dates: start: 20070512
  13. ASPIRIN [Concomitant]
     Dosage: 100 MG, QD
     Route: 048
     Dates: start: 20040602
  14. FUROSEMIDE [Concomitant]
     Dosage: 125 MG, PER DAY
     Route: 048
     Dates: start: 20091002, end: 20110719
  15. FUROSEMIDE [Concomitant]
     Dosage: 125 MG, QD
     Route: 048
     Dates: start: 20060420
  16. RAMIPRIL [Concomitant]
     Indication: HYPERTENSION
     Dosage: 25/5 MG, QD
     Route: 048
     Dates: start: 20071124
  17. METFORMIN HCL [Concomitant]
     Dosage: 500 MG, QD
     Route: 048
     Dates: start: 20060312

REACTIONS (6)
  - ACUTE MYOCARDIAL INFARCTION [None]
  - BLOOD SODIUM DECREASED [None]
  - POLYURIA [None]
  - OEDEMA [None]
  - URINARY TRACT INFECTION [None]
  - BLOOD CREATININE INCREASED [None]
